FAERS Safety Report 5409743-4 (Version None)
Quarter: 2007Q3

REPORT INFORMATION
  Report Type: 
  Country: None (occurrence: None)
  Receive Date: 20070809
  Receipt Date: 20070803
  Transmission Date: 20080115
  Serious: Yes (Hospitalization)
  Sender: FDA-Public Use
  Company Number: B0481068A

PATIENT
  Age: 78 Year
  Sex: Male
  Weight: 64 kg

DRUGS (9)
  1. REQUIP [Suspect]
     Indication: MULTIPLE SYSTEM ATROPHY
     Route: 048
     Dates: start: 20070705
  2. LUVOX [Suspect]
     Indication: DEPRESSION
     Dosage: 100MG PER DAY
     Route: 048
     Dates: start: 20070629
  3. MICARDIS [Concomitant]
     Indication: HYPERTENSION
     Dosage: 40MG PER DAY
     Route: 048
     Dates: start: 20070629
  4. CALBLOCK [Concomitant]
     Indication: HYPERTENSION
     Dosage: 16MG PER DAY
     Route: 048
     Dates: start: 20070629
  5. ZYRTEC [Concomitant]
     Dosage: 10MG PER DAY
     Route: 048
     Dates: start: 20070629
  6. HARNAL [Concomitant]
     Indication: BENIGN PROSTATIC HYPERPLASIA
     Dosage: .3MG PER DAY
     Route: 048
     Dates: start: 20070629
  7. BETHANECHOL CHLORIDE [Concomitant]
     Indication: BENIGN PROSTATIC HYPERPLASIA
     Dosage: 30MG PER DAY
     Route: 048
     Dates: start: 20070629
  8. PIRMENOL HYDROCHLORIDE [Concomitant]
     Indication: VENTRICULAR TACHYCARDIA
     Dosage: 100MG PER DAY
     Route: 048
     Dates: start: 20070629
  9. ALPRAZOLAM [Concomitant]
     Indication: ANXIETY DISORDER
     Dosage: .8MG PER DAY
     Route: 048
     Dates: start: 20070629

REACTIONS (6)
  - ASPARTATE AMINOTRANSFERASE INCREASED [None]
  - BLOOD OSMOLARITY DECREASED [None]
  - HYPONATRAEMIA [None]
  - INAPPROPRIATE ANTIDIURETIC HORMONE SECRETION [None]
  - LIVER DISORDER [None]
  - URINE SODIUM NORMAL [None]
